FAERS Safety Report 5298702-0 (Version None)
Quarter: 2007Q2

REPORT INFORMATION
  Report Type: 
  Country: None (occurrence: None)
  Receive Date: 20070417
  Receipt Date: 20070404
  Transmission Date: 20071010
  Serious: Yes (Other)
  Sender: FDA-Public Use
  Company Number: PHFR2007GB01258

PATIENT
  Age: 71 Year
  Sex: Male
  Weight: 122 kg

DRUGS (3)
  1. CARBAMAZEPINE [Suspect]
     Indication: EPILEPSY
     Dosage: 200 MG, TID
     Route: 048
     Dates: start: 19990112
  2. PHENYTOIN (NGX) [Suspect]
     Indication: EPILEPSY
     Dosage: 200MG/DAY
     Route: 048
     Dates: start: 19910327
  3. XENICAL [Suspect]
     Indication: OBESITY
     Dosage: 120 MG, TID
     Route: 048
     Dates: start: 20061106, end: 20061207

REACTIONS (2)
  - DRUG INTERACTION [None]
  - EPILEPSY [None]
